FAERS Safety Report 6122929-9 (Version None)
Quarter: 2009Q1

REPORT INFORMATION
  Report Type: 
  Country: None (occurrence: None)
  Receive Date: 20090318
  Receipt Date: 20090309
  Transmission Date: 20090719
  Serious: Yes (Disabling, Other)
  Sender: FDA-Public Use
  Company Number: PHHY2009GB08891

PATIENT
  Sex: Female

DRUGS (1)
  1. DIOVAN [Suspect]
     Indication: HYPERTENSION
     Dosage: 80 MG, QD
     Route: 048
     Dates: start: 20060720

REACTIONS (6)
  - CONJUNCTIVAL DEPOSIT [None]
  - DEPOSIT EYE [None]
  - EYE IRRITATION [None]
  - EYE PAIN [None]
  - METABOLIC DISORDER [None]
  - VISION BLURRED [None]
